FAERS Safety Report 14048762 (Version 3)
Quarter: 2017Q4

REPORT INFORMATION
  Report Type: Spontaneous
  Country: US (occurrence: US)
  Receive Date: 20171005
  Receipt Date: 20171219
  Transmission Date: 20180321
  Serious: Yes (Life-Threatening)
  Sender: FDA-Public Use
  Company Number: US-SAGE PRODUCTS, LLC-2028922

PATIENT

DRUGS (3)
  1. MOUTH MOISTURIZER [Suspect]
     Active Substance: UNSPECIFIED INGREDIENT
     Route: 002
  2. PEROX-A-MINT SOLUTION [Suspect]
     Active Substance: HYDROGEN PEROXIDE
     Indication: DENTAL DISORDER PROPHYLAXIS
     Route: 048
  3. CHLORHEXIDINE GLUCONATE 0.12% ORAL RINSE [Suspect]
     Active Substance: CHLORHEXIDINE GLUCONATE
     Route: 048

REACTIONS (1)
  - Bacterial infection [Not Recovered/Not Resolved]

NARRATIVE: CASE EVENT DATE: 20170808
